FAERS Safety Report 11603487 (Version 1)
Quarter: 2015Q4

REPORT INFORMATION
  Report Type: Spontaneous
  Country: US (occurrence: None)
  Receive Date: 20151006
  Receipt Date: 20151006
  Transmission Date: 20160304
  Serious: Yes (Hospitalization)
  Sender: FDA-Public Use
  Company Number: None

PATIENT
  Sex: Male
  Weight: 86.4 kg

DRUGS (23)
  1. ACETAMINOPHEN. [Concomitant]
     Active Substance: ACETAMINOPHEN
  2. NOVOLIN [Concomitant]
     Active Substance: INSULIN HUMAN
  3. RALTRASAVIR [Concomitant]
  4. MYCOPHENOLATE [Concomitant]
     Active Substance: MYCOPHENOLIC ACID
  5. NIFEDIPINE. [Concomitant]
     Active Substance: NIFEDIPINE
  6. SENNA [Concomitant]
     Active Substance: SENNA LEAF\SENNOSIDES\SENNOSIDES A AND B
  7. TRUVEDA [Concomitant]
  8. LEVEMIR [Concomitant]
     Active Substance: INSULIN DETEMIR
  9. METOPROLOL [Concomitant]
     Active Substance: METOPROLOL
  10. SIMVASTATIN. [Concomitant]
     Active Substance: SIMVASTATIN
  11. TRAODONE [Concomitant]
  12. HARVONI [Suspect]
     Active Substance: LEDIPASVIR\SOFOSBUVIR
     Indication: HEPATITIS C
     Dosage: 90/400
     Route: 048
     Dates: start: 20141224, end: 20150609
  13. FAMOTIDINE. [Concomitant]
     Active Substance: FAMOTIDINE
  14. POLYETHYLENE GLYCOL [Concomitant]
     Active Substance: POLYETHYLENE GLYCOLS
  15. MULTIVITAMIN WITH MINIERALS [Concomitant]
  16. MAGNASIUM OXIDE [Concomitant]
  17. POSACONAZOLE [Concomitant]
     Active Substance: POSACONAZOLE
  18. VITAMIN D3 [Concomitant]
     Active Substance: CHOLECALCIFEROL
  19. SULFAMETHOXAZOLE-TRIMETHOPRIM [Concomitant]
     Active Substance: SULFAMETHOXAZOLE\TRIMETHOPRIM
  20. VALCYTE [Concomitant]
     Active Substance: VALGANCICLOVIR HYDROCHLORIDE
  21. PREDNISONE. [Concomitant]
     Active Substance: PREDNISONE
  22. TACROLIMUS. [Concomitant]
     Active Substance: TACROLIMUS
  23. RIFAXIMIN [Concomitant]
     Active Substance: RIFAXIMIN

REACTIONS (5)
  - Mental status changes [None]
  - Hallucination [None]
  - Aspergillus infection [None]
  - Drug intolerance [None]
  - Mitral valve prolapse [None]

NARRATIVE: CASE EVENT DATE: 20150324
